FAERS Safety Report 9118239 (Version 2)
Quarter: 2013Q2

REPORT INFORMATION
  Report Type: Spontaneous
  Country: US (occurrence: US)
  Receive Date: 20130128
  Receipt Date: 20130424
  Transmission Date: 20140414
  Serious: No
  Sender: FDA-Public Use
  Company Number: US-009507513-1301USA011536

PATIENT
  Age: 31 Year
  Sex: Female
  Weight: 104.22 kg

DRUGS (1)
  1. IMPLANON [Suspect]
     Indication: CONTRACEPTION
     Dosage: 68 MG, 3 YEAR IMPLANT
     Route: 059
     Dates: start: 20130114, end: 20130128

REACTIONS (2)
  - Device dislocation [Unknown]
  - Device expulsion [Unknown]
